FAERS Safety Report 9662841 (Version 2)
Quarter: 2013Q4

REPORT INFORMATION
  Report Type: Spontaneous
  Country: US (occurrence: US)
  Receive Date: 20131031
  Receipt Date: 20131031
  Transmission Date: 20140711
  Serious: No
  Sender: FDA-Public Use
  Company Number: US-PURDUE-USA-2010-0056794

PATIENT
  Age: 38 Year
  Sex: Female
  Weight: 77 kg

DRUGS (8)
  1. OXYCONTIN (NDA 22-272) [Suspect]
     Indication: PAIN
     Dosage: 60 MG, TID
     Route: 048
     Dates: start: 20101014
  2. OXYCODONE [Concomitant]
     Indication: BREAKTHROUGH PAIN
     Dosage: 15 MG, QID
  3. NEUROTIN                           /00949202/ [Concomitant]
  4. PHENERGAN                          /00033001/ [Concomitant]
  5. PRENATAL VITAMINS                  /01549301/ [Concomitant]
     Indication: GASTRIC BYPASS
  6. B-12 LATINO [Concomitant]
  7. XANAX [Concomitant]
  8. IRON COMPLEX                       /00023501/ [Concomitant]

REACTIONS (2)
  - Drug ineffective [Not Recovered/Not Resolved]
  - Medication residue present [Unknown]
